FAERS Safety Report 7909929-0 (Version None)
Quarter: 2011Q4

REPORT INFORMATION
  Report Type: 
  Country: None (occurrence: None)
  Receive Date: 20111111
  Receipt Date: 20111103
  Transmission Date: 20120403
  Serious: Yes (Other)
  Sender: FDA-Public Use
  Company Number: CN-JNJFOC-20111101908

PATIENT
  Age: 11 Year

DRUGS (2)
  1. CONCERTA [Suspect]
     Indication: PSYCHOMOTOR HYPERACTIVITY
     Route: 048
     Dates: start: 20110901, end: 20111001
  2. CONCERTA [Suspect]
     Route: 048
     Dates: start: 20110901, end: 20110901

REACTIONS (1)
  - DYSTONIA [None]
